FAERS Safety Report 18039452 (Version 1)
Quarter: 2020Q3

REPORT INFORMATION
  Report Type: Report from Study
  Country: CA (occurrence: CA)
  Receive Date: 20200717
  Receipt Date: 20200717
  Transmission Date: 20201103
  Serious: Yes (Other)
  Sender: FDA-Public Use
  Company Number: CA-TAKEDA-2020TUS030820

PATIENT
  Age: 74 Year
  Sex: Male

DRUGS (4)
  1. FIRMAGON [Concomitant]
     Active Substance: DEGARELIX ACETATE
     Indication: PROSTATE CANCER
     Dosage: UNK
  2. PREDNISONE. [Concomitant]
     Active Substance: PREDNISONE
     Dosage: UNK
  3. SALOFALK                           /00000301/ [Concomitant]
     Active Substance: AMINOSALICYLIC ACID
     Dosage: UNK
  4. VEDOLIZUMAB [Suspect]
     Active Substance: VEDOLIZUMAB
     Indication: COLITIS ULCERATIVE
     Dosage: 300 MILLIGRAM
     Route: 042
     Dates: start: 20170629

REACTIONS (5)
  - Infusion site haemorrhage [Unknown]
  - Contusion [Unknown]
  - Metastases to lymph nodes [Unknown]
  - Prostate cancer recurrent [Unknown]
  - Diarrhoea [Unknown]

NARRATIVE: CASE EVENT DATE: 202006
